FAERS Safety Report 26078442 (Version 3)
Quarter: 2025Q4

REPORT INFORMATION
  Report Type: Spontaneous
  Country: EU (occurrence: EU)
  Receive Date: 20251123
  Receipt Date: 20251215
  Transmission Date: 20260118
  Serious: Yes (Other)
  Sender: AUROBINDO
  Company Number: EU-002147023-NVSC2025DE171730

PATIENT
  Sex: Female
  Weight: 62 kg

DRUGS (6)
  1. ANASTROZOLE [Suspect]
     Active Substance: ANASTROZOLE
     Indication: Hormone receptor positive HER2 negative breast cancer
     Dosage: 1 MILLIGRAM, ONCE A DAY [1 MG, QD (TOTAL DAILY DOSE)]
     Route: 061
     Dates: start: 20250711
  2. KISQALI [Suspect]
     Active Substance: RIBOCICLIB SUCCINATE
     Indication: Hormone receptor positive HER2 negative breast cancer
     Dosage: 200 MILLIGRAM (200 MG (TOTAL DAILY DOSE), 21 DAYS DAILY INTAKE, 7 DAYS PAUSE)
     Route: 061
     Dates: start: 20250711, end: 20250807
  3. KISQALI [Suspect]
     Active Substance: RIBOCICLIB SUCCINATE
     Dosage: 200 MILLIGRAM (200 MG (TOTAL DAILY DOSE), 21 DAYS DAILY INTAKE, 7 DAYS PAUSE)
     Route: 061
     Dates: start: 20250808, end: 20250904
  4. KISQALI [Suspect]
     Active Substance: RIBOCICLIB SUCCINATE
     Dosage: 200 MILLIGRAM (200 MG (TOTAL DAILY DOSE), 21 DAYS DAILY INTAKE, 7 DAYS PAUSE)
     Route: 061
     Dates: start: 20250905, end: 20251006
  5. KISQALI [Suspect]
     Active Substance: RIBOCICLIB SUCCINATE
     Dosage: 200 MILLIGRAM (200 MG (TOTAL DAILY DOSE), 21 DAYS DAILY INTAKE, 7 DAYS PAUSE)
     Route: 061
     Dates: start: 20251007, end: 20251103
  6. KISQALI [Suspect]
     Active Substance: RIBOCICLIB SUCCINATE
     Dosage: 200 MILLIGRAM (200 MG (TOTAL DAILY DOSE), 21 DAYS DAILY INTAKE, 7 DAYS PAUSE)
     Route: 061

REACTIONS (3)
  - Neutropenia [Not Recovered/Not Resolved]
  - Leukopenia [Not Recovered/Not Resolved]
  - Off label use [Not Recovered/Not Resolved]

NARRATIVE: CASE EVENT DATE: 20250711
